FAERS Safety Report 7956937-X (Version None)
Quarter: 2011Q4

REPORT INFORMATION
  Report Type: 
  Country: None (occurrence: None)
  Receive Date: 20111205
  Receipt Date: 20111128
  Transmission Date: 20120403
  Serious: Yes (Other)
  Sender: FDA-Public Use
  Company Number: FR-ROCHE-1018304

PATIENT
  Sex: Female

DRUGS (9)
  1. BRICANYL [Concomitant]
  2. ZITHROMAX [Concomitant]
  3. PULMICORT [Concomitant]
  4. FLUTICASONE PROPIONATE/SALMETEROL [Concomitant]
  5. SINGULAIR [Concomitant]
  6. ESOMEPRAZOLE [Concomitant]
  7. DOMPERIDONE [Concomitant]
  8. XOLAIR [Suspect]
     Indication: ASTHMA
  9. SPIRIVA [Concomitant]

REACTIONS (2)
  - DIARRHOEA [None]
  - HEADACHE [None]
